FAERS Safety Report 15050127 (Version 1)
Quarter: 2018Q2

REPORT INFORMATION
  Report Type: Spontaneous
  Country: JP (occurrence: JP)
  Receive Date: 20180622
  Receipt Date: 20180622
  Transmission Date: 20180711
  Serious: Yes (Other)
  Sender: FDA-Public Use
  Company Number: JP-BIOVITRUM-2017BV000473

PATIENT
  Age: 6 Month
  Sex: Male
  Weight: 11 kg

DRUGS (3)
  1. ALPROLIX [Suspect]
     Active Substance: EFTRENONACOG ALFA
     Indication: FACTOR IX DEFICIENCY
     Route: 042
     Dates: start: 20170327, end: 20170327
  2. IDELVION [Concomitant]
     Active Substance: COAGULATION FACTOR IX RECOMBINANT HUMAN
     Dosage: ROUTINE TREATMENT
     Route: 065
  3. IDELVION [Concomitant]
     Active Substance: COAGULATION FACTOR IX RECOMBINANT HUMAN
     Indication: FACTOR IX DEFICIENCY
     Route: 065
     Dates: start: 20170330

REACTIONS (1)
  - Factor IX inhibition [Not Recovered/Not Resolved]

NARRATIVE: CASE EVENT DATE: 20170418
